FAERS Safety Report 5736675-4 (Version None)
Quarter: 2008Q2

REPORT INFORMATION
  Report Type: 
  Country: None (occurrence: None)
  Receive Date: 20080513
  Receipt Date: 20080502
  Transmission Date: 20081010
  Serious: Yes (Hospitalization)
  Sender: FDA-Public Use
  Company Number: PFIZER INC-2008038176

PATIENT
  Sex: Male

DRUGS (4)
  1. SU-011,248 [Suspect]
     Indication: BLADDER CANCER
  2. ALLOPURINOL [Concomitant]
  3. OXYCODONE HCL [Concomitant]
  4. OXYCODONE HCL [Concomitant]

REACTIONS (1)
  - MYOCARDIAL INFARCTION [None]
